FAERS Safety Report 7503220-2 (Version None)
Quarter: 2011Q2

REPORT INFORMATION
  Report Type: 
  Country: None (occurrence: None)
  Receive Date: 20110525
  Receipt Date: 20110103
  Transmission Date: 20111010
  Serious: No
  Sender: FDA-Public Use
  Company Number: A0902517A

PATIENT
  Sex: Male

DRUGS (2)
  1. BACTROBAN [Suspect]
     Route: 061
     Dates: start: 20101220
  2. NO CONCURRENT MEDICATION [Concomitant]

REACTIONS (2)
  - WOUND [None]
  - DRUG INEFFECTIVE [None]
